FAERS Safety Report 13922900 (Version 1)
Quarter: 2017Q3

REPORT INFORMATION
  Report Type: Spontaneous
  Country: US (occurrence: US)
  Receive Date: 20170830
  Receipt Date: 20170830
  Transmission Date: 20171127
  Serious: Yes (Other)
  Sender: FDA-Public Use
  Company Number: US-MYLANLABS-2017M1053517

PATIENT
  Age: 6 Year
  Sex: Male

DRUGS (5)
  1. MORPHINE [Suspect]
     Active Substance: MORPHINE
     Dosage: 0.08MG/KG/HOUR (1.2MG/HOUR) FOR 2 CYCLES (CYCLE 1 AND 2)
     Route: 050
  2. GABAPENTIN. [Suspect]
     Active Substance: GABAPENTIN
     Indication: PAIN
     Dosage: DISCONTINUED AFTER 2ND CYCLE
     Route: 065
  3. DINUTUXIMAB [Suspect]
     Active Substance: DINUTUXIMAB
     Indication: NEUROBLASTOMA
     Route: 065
  4. MORPHINE [Suspect]
     Active Substance: MORPHINE
     Indication: PAIN
     Dosage: 0.05MG/KG FOR 2 CYCLES (CYCLE 1 AND 2)
     Route: 050
  5. EFLORNITHINE [Concomitant]
     Active Substance: EFLORNITHINE
     Indication: NEUROBLASTOMA
     Route: 065

REACTIONS (4)
  - Sedation complication [Recovered/Resolved]
  - Hypoxia [Recovered/Resolved]
  - Pain [Recovered/Resolved]
  - Bradypnoea [Unknown]
